FAERS Safety Report 7988253-4 (Version None)
Quarter: 2011Q4

REPORT INFORMATION
  Report Type: 
  Country: None (occurrence: None)
  Receive Date: 20111216
  Receipt Date: 20111208
  Transmission Date: 20120403
  Serious: Yes (Hospitalization)
  Sender: FDA-Public Use
  Company Number: US-JNJFOC-20111204368

PATIENT
  Age: 18 Year
  Sex: Male
  Weight: 126.8 kg

DRUGS (2)
  1. ACETAMINOPHEN [Suspect]
     Indication: TOOTHACHE
     Dosage: TOOK 81 500MG TABLETS IN 24 HOURS OR LESS.
     Route: 048
  2. ACETAMINOPHEN [Suspect]
     Route: 048

REACTIONS (5)
  - ABDOMINAL DISCOMFORT [None]
  - LIVER FUNCTION TEST ABNORMAL [None]
  - VOMITING [None]
  - OVERDOSE [None]
  - NAUSEA [None]
